FAERS Safety Report 9407398 (Version 1)
Quarter: 2013Q3

REPORT INFORMATION
  Report Type: Spontaneous
  Country: US (occurrence: None)
  Receive Date: 20130717
  Receipt Date: 20130717
  Transmission Date: 20140515
  Serious: Yes (Death, Life-Threatening)
  Sender: FDA-Public Use
  Company Number: None

PATIENT
  Age: 64 Year
  Sex: Male
  Weight: 71.4 kg

DRUGS (3)
  1. PANOBINOSTAT [Suspect]
     Indication: ACUTE MYELOID LEUKAEMIA
  2. CYTARABINE [Suspect]
     Indication: ACUTE MYELOID LEUKAEMIA
  3. DAUNORUBICIN [Suspect]

REACTIONS (20)
  - Fluid overload [None]
  - Pleural effusion [None]
  - Atrial fibrillation [None]
  - Procedural complication [None]
  - Necrosis [None]
  - Pulmonary haemorrhage [None]
  - Ejection fraction decreased [None]
  - Ischaemia [None]
  - Troponin increased [None]
  - General physical health deterioration [None]
  - Bacterial test positive [None]
  - Streptococcus test positive [None]
  - Respiratory failure [None]
  - Atrial fibrillation [None]
  - Liver function test abnormal [None]
  - Anuria [None]
  - Sepsis [None]
  - Hypotension [None]
  - Tachycardia [None]
  - Pneumonia [None]
